FAERS Safety Report 8922294 (Version 1)
Quarter: 2012Q4

REPORT INFORMATION
  Report Type: 
  Country: DE (occurrence: DE)
  Receive Date: 20121123
  Receipt Date: 20121123
  Transmission Date: 20130627
  Serious: Yes (Hospitalization)
  Sender: FDA-Public Use
  Company Number: DE-B.I. PHARMACEUTICALS,INC./RIDGEFIELD-2012-DE-02748DE

PATIENT
  Age: 69 Year
  Sex: Female
  Weight: 60 kg

DRUGS (6)
  1. AGGRENOX [Suspect]
     Indication: PROPHYLAXIS
     Dosage: 2 anz
     Dates: start: 200810
  2. RAMIPRIL/CORAXCOM [Concomitant]
  3. BLOPRESS [Concomitant]
  4. METFORMIN [Concomitant]
  5. RAMIPRIL [Concomitant]
  6. AMLODIPIN [Concomitant]

REACTIONS (2)
  - Cystitis [Not Recovered/Not Resolved]
  - Anaemia [Not Recovered/Not Resolved]
